FAERS Safety Report 6452138-5 (Version None)
Quarter: 2009Q4

REPORT INFORMATION
  Report Type: 
  Country: None (occurrence: None)
  Receive Date: 20091123
  Receipt Date: 20091112
  Transmission Date: 20100525
  Serious: Yes (Hospitalization)
  Sender: FDA-Public Use
  Company Number: US-ASTRAZENECA-2009SE26190

PATIENT
  Age: 42 Year
  Sex: Female
  Weight: 66.2 kg

DRUGS (4)
  1. NEXIUM [Suspect]
     Indication: GASTROOESOPHAGEAL REFLUX DISEASE
     Route: 048
     Dates: start: 20090701
  2. ZOFRAN [Concomitant]
  3. ZANTAC [Concomitant]
  4. BENTYL [Concomitant]

REACTIONS (6)
  - DIARRHOEA [None]
  - HEADACHE [None]
  - HOSPITALISATION [None]
  - INCORRECT DOSE ADMINISTERED [None]
  - IRRITABLE BOWEL SYNDROME [None]
  - NAUSEA [None]
